FAERS Safety Report 23515035 (Version 13)
Quarter: 2025Q2

REPORT INFORMATION
  Report Type: Report from Study
  Country: US (occurrence: US)
  Receive Date: 20240212
  Receipt Date: 20250415
  Transmission Date: 20250716
  Serious: Yes (Other)
  Sender: TAKEDA
  Company Number: US-TAKEDA-2024TUS005409

PATIENT
  Age: 55 Year
  Sex: Male

DRUGS (11)
  1. PONATINIB [Suspect]
     Active Substance: PONATINIB
     Indication: Chronic myeloid leukaemia
     Dosage: 45 MILLIGRAM, QD
     Dates: start: 20240122
  2. PONATINIB [Suspect]
     Active Substance: PONATINIB
     Dosage: 45 MILLIGRAM, QD
  3. PONATINIB [Suspect]
     Active Substance: PONATINIB
     Dosage: 45 MILLIGRAM, QD
  4. PONATINIB [Suspect]
     Active Substance: PONATINIB
     Dosage: 15 MILLIGRAM, QD
     Dates: start: 20240305
  5. PONATINIB [Suspect]
     Active Substance: PONATINIB
     Dosage: 15 MILLIGRAM, QD
  6. PONATINIB [Suspect]
     Active Substance: PONATINIB
     Dosage: 15 MILLIGRAM, QD
  7. PONATINIB [Suspect]
     Active Substance: PONATINIB
  8. PONATINIB [Suspect]
     Active Substance: PONATINIB
     Dosage: 15 MILLIGRAM, QD
  9. PONATINIB [Suspect]
     Active Substance: PONATINIB
     Dosage: 15 MILLIGRAM, QD
  10. CARVEDILOL [Suspect]
     Active Substance: CARVEDILOL
     Indication: Product used for unknown indication
  11. DOXYCYCLINE [Suspect]
     Active Substance: DOXYCYCLINE
     Indication: Rash

REACTIONS (36)
  - Muscle atrophy [Recovered/Resolved]
  - Renal failure [Not Recovered/Not Resolved]
  - Pneumothorax [Unknown]
  - Leukaemia [Unknown]
  - Narcolepsy [Unknown]
  - Feeling abnormal [Recovering/Resolving]
  - Gait inability [Recovering/Resolving]
  - Eructation [Recovering/Resolving]
  - Thirst [Recovering/Resolving]
  - Myalgia [Recovered/Resolved]
  - Hepatic failure [Not Recovered/Not Resolved]
  - Headache [Unknown]
  - Cardiac failure [Not Recovered/Not Resolved]
  - Blood creatine increased [Not Recovered/Not Resolved]
  - Off label use [Unknown]
  - Gallbladder disorder [Not Recovered/Not Resolved]
  - Dermal cyst [Unknown]
  - Loss of personal independence in daily activities [Unknown]
  - Liver disorder [Unknown]
  - COVID-19 [Unknown]
  - Impaired quality of life [Unknown]
  - Hypokinesia [Unknown]
  - Sunburn [Unknown]
  - Nervousness [Unknown]
  - Muscular weakness [Unknown]
  - Aortic aneurysm [Unknown]
  - Drug effect less than expected [Unknown]
  - Blood pressure increased [Unknown]
  - Dry skin [Unknown]
  - Rash [Unknown]
  - Insomnia [Unknown]
  - Pain of skin [Unknown]
  - Arthralgia [Unknown]
  - Dyspnoea [Unknown]
  - Asthenia [Unknown]
  - Fatigue [Unknown]

NARRATIVE: CASE EVENT DATE: 20240124
